FAERS Safety Report 21462627 (Version 1)
Quarter: 2022Q4

REPORT INFORMATION
  Report Type: Report from Study
  Country: AR (occurrence: AR)
  Receive Date: 20221017
  Receipt Date: 20221017
  Transmission Date: 20230112
  Serious: Yes (Other)
  Sender: FDA-Public Use
  Company Number: AR-ABBVIE-4157609

PATIENT
  Age: 37 Year
  Sex: Female

DRUGS (1)
  1. HUMIRA [Suspect]
     Active Substance: ADALIMUMAB
     Indication: Hidradenitis
     Dosage: STRENGTH: 80 MG
     Route: 058
     Dates: start: 20220120

REACTIONS (2)
  - Spinal cord neoplasm [Not Recovered/Not Resolved]
  - Cervical radiculopathy [Unknown]

NARRATIVE: CASE EVENT DATE: 20220926
